FAERS Safety Report 7134644-3 (Version None)
Quarter: 2010Q4

REPORT INFORMATION
  Report Type: 
  Country: None (occurrence: None)
  Receive Date: 20101203
  Receipt Date: 20101130
  Transmission Date: 20110411
  Serious: Yes (Life-Threatening)
  Sender: FDA-Public Use
  Company Number: PHHY2010FR81451

PATIENT

DRUGS (1)
  1. ZOLEDRONATE T29581++BM [Suspect]
     Indication: METASTASES TO BONE
     Route: 042

REACTIONS (2)
  - LARGE INTESTINE PERFORATION [None]
  - SIGMOIDITIS [None]
